FAERS Safety Report 5372770-X (Version None)
Quarter: 2007Q2

REPORT INFORMATION
  Report Type: 
  Country: None (occurrence: None)
  Receive Date: 20070626
  Receipt Date: 20070611
  Transmission Date: 20071010
  Serious: Yes (Disabling, Other)
  Sender: FDA-Public Use
  Company Number: 2007RR-06257

PATIENT
  Age: 25 Year
  Sex: Male
  Weight: 72 kg

DRUGS (2)
  1. ACYCLOVIR [Suspect]
     Indication: HERPES ZOSTER
     Dosage: 800 MG, 5 TIMES DAILY, ORAL
     Route: 048
     Dates: start: 20061113, end: 20061122
  2. AMITRIPTYLINE HCL [Suspect]
     Indication: HERPES ZOSTER
     Dosage: 10 MG, QD, ORAL
     Route: 048
     Dates: start: 20061123, end: 20061201

REACTIONS (1)
  - DEAFNESS [None]
